FAERS Safety Report 11653543 (Version 3)
Quarter: 2016Q1

REPORT INFORMATION
  Report Type: Report from Study
  Country: US (occurrence: US)
  Receive Date: 20151022
  Receipt Date: 20160118
  Transmission Date: 20160525
  Serious: Yes (Other)
  Sender: FDA-Public Use
  Company Number: US-BAYER-2015-411488

PATIENT
  Age: 51 Year
  Sex: Female

DRUGS (1)
  1. STIVARGA [Suspect]
     Active Substance: REGORAFENIB
     Indication: GASTROINTESTINAL STROMAL CANCER
     Dosage: 80 MG, QD
     Route: 048
     Dates: start: 20150821

REACTIONS (18)
  - Pain in extremity [None]
  - Erythema [None]
  - Abdominal pain [Recovered/Resolved]
  - Dry skin [Not Recovered/Not Resolved]
  - Constipation [None]
  - Chest pain [None]
  - Alopecia [Not Recovered/Not Resolved]
  - Pain of skin [None]
  - Vision blurred [Recovered/Resolved]
  - Product use issue [None]
  - Skin fissures [Not Recovered/Not Resolved]
  - Loss of consciousness [None]
  - Pain of skin [Not Recovered/Not Resolved]
  - Musculoskeletal stiffness [None]
  - Skin exfoliation [Not Recovered/Not Resolved]
  - Fatigue [Not Recovered/Not Resolved]
  - Dysphonia [None]
  - Pain in extremity [None]

NARRATIVE: CASE EVENT DATE: 201508
